FAERS Safety Report 6731861-9 (Version None)
Quarter: 2010Q2

REPORT INFORMATION
  Report Type: 
  Country: None (occurrence: None)
  Receive Date: 20100519
  Receipt Date: 20100519
  Transmission Date: 20101027
  Serious: Yes (Life-Threatening, Hospitalization)
  Sender: FDA-Public Use
  Company Number: None

PATIENT
  Age: 3 Year
  Sex: Female
  Weight: 16.7831 kg

DRUGS (2)
  1. ZYRTEC [Suspect]
     Indication: SEASONAL ALLERGY
     Dosage: 2.5 ML ONCE PO
     Route: 048
     Dates: start: 20100330, end: 20100330
  2. CHILDREN'S TYLENOL MCNEIL [Suspect]
     Indication: ANTIPYRESIS
     Dosage: 5.0ML ONCE PO
     Route: 048
     Dates: start: 20100331, end: 20100331

REACTIONS (6)
  - BODY TEMPERATURE INCREASED [None]
  - FATIGUE [None]
  - LETHARGY [None]
  - PRODUCT QUALITY ISSUE [None]
  - UNRESPONSIVE TO STIMULI [None]
  - VOMITING [None]
